FAERS Safety Report 9718839 (Version 1)
Quarter: 2013Q4

REPORT INFORMATION
  Report Type: Spontaneous
  Country: GB (occurrence: GB)
  Receive Date: 20131127
  Receipt Date: 20131127
  Transmission Date: 20140711
  Serious: Yes (Death)
  Sender: FDA-Public Use
  Company Number: GB-WATSON-2013-21816

PATIENT
  Sex: 0

DRUGS (1)
  1. MIRTAZAPINE (UNKNOWN) [Suspect]
     Indication: ANXIETY
     Dosage: 15 MG, UNKNOWN
     Route: 064

REACTIONS (1)
  - Stillbirth [Fatal]
